FAERS Safety Report 24446255 (Version 2)
Quarter: 2024Q4

REPORT INFORMATION
  Report Type: Spontaneous
  Country: US (occurrence: US)
  Receive Date: 20241016
  Receipt Date: 20241125
  Transmission Date: 20250114
  Serious: Yes (Other)
  Sender: SANOFI AVENTIS
  Company Number: US-SANOFI-02247809

PATIENT
  Age: 16 Year
  Sex: Male

DRUGS (1)
  1. TUBERSOL [Suspect]
     Active Substance: TUBERCULIN PURIFIED PROTEIN DERIVATIVE
     Indication: Immunisation
     Dosage: 0.1 ML, 1X
     Route: 023
     Dates: start: 20241001, end: 20241001

REACTIONS (2)
  - Tonic clonic movements [Unknown]
  - Syncope [Unknown]

NARRATIVE: CASE EVENT DATE: 20241001
